FAERS Safety Report 13857000 (Version 1)
Quarter: 2017Q3

REPORT INFORMATION
  Report Type: Spontaneous
  Country: US (occurrence: US)
  Receive Date: 20170810
  Receipt Date: 20170810
  Transmission Date: 20171127
  Serious: No
  Sender: FDA-Public Use
  Company Number: US-ROCHE-1345124

PATIENT
  Age: 52 Year
  Sex: Female

DRUGS (3)
  1. PROGESTERONE. [Concomitant]
     Active Substance: PROGESTERONE
     Indication: MENOPAUSE
     Route: 048
  2. LEXAPRO [Concomitant]
     Active Substance: ESCITALOPRAM OXALATE
     Indication: ANXIETY
     Route: 048
  3. TAMIFLU [Suspect]
     Active Substance: OSELTAMIVIR PHOSPHATE
     Indication: ANTIVIRAL PROPHYLAXIS
     Dosage: FOR 5 DAYS
     Route: 065
     Dates: start: 20140128, end: 20140202

REACTIONS (8)
  - Dyspnoea [Unknown]
  - Arthralgia [Recovered/Resolved]
  - Aphonia [Unknown]
  - Oropharyngeal pain [Unknown]
  - Cough [Recovered/Resolved]
  - Lower respiratory tract infection [Unknown]
  - Respiratory disorder [Unknown]
  - Painful respiration [Unknown]

NARRATIVE: CASE EVENT DATE: 20140201
